FAERS Safety Report 5058211-0 (Version None)
Quarter: 2006Q2

REPORT INFORMATION
  Report Type: 
  Country: None (occurrence: None)
  Receive Date: 20060622
  Receipt Date: 20051121
  Transmission Date: 20061013
  Serious: Yes (Other)
  Sender: FDA-Public Use
  Company Number: US-JNJFOC-20051105965

PATIENT
  Age: 66 Year
  Sex: Female

DRUGS (7)
  1. DURAGESIC-100 [Suspect]
     Indication: PAIN
     Dosage: 100 UG/HR, TRANSDERMAL
     Route: 062
  2. DARVOCET [Suspect]
     Indication: DRUG USE FOR UNKNOWN INDICATION
  3. BACLOFEN [Concomitant]
  4. BUSPAR [Concomitant]
  5. NEURONTIN [Concomitant]
  6. REMERON [Concomitant]
  7. MACROBID [Concomitant]

REACTIONS (1)
  - COMA [None]
